FAERS Safety Report 25546753 (Version 1)
Quarter: 2025Q3

REPORT INFORMATION
  Report Type: Spontaneous
  Country: CL (occurrence: CL)
  Receive Date: 20250714
  Receipt Date: 20250714
  Transmission Date: 20251021
  Serious: Yes (Hospitalization)
  Sender: JOHNSON AND JOHNSON
  Company Number: CL-JNJFOC-20250703200

PATIENT

DRUGS (1)
  1. REMICADE [Suspect]
     Active Substance: INFLIXIMAB
     Indication: Crohn^s disease
     Route: 041
     Dates: start: 2024

REACTIONS (5)
  - Hospitalisation [Unknown]
  - Tachycardia [Unknown]
  - Chest discomfort [Unknown]
  - Pruritus [Unknown]
  - Drug ineffective [Unknown]
